FAERS Safety Report 13432815 (Version 1)
Quarter: 2017Q2

REPORT INFORMATION
  Report Type: Report from Study
  Country: US (occurrence: US)
  Receive Date: 20170412
  Receipt Date: 20170412
  Transmission Date: 20170830
  Serious: Yes (Hospitalization)
  Sender: FDA-Public Use
  Company Number: US-AMGEN-USASL2017053181

PATIENT
  Age: 70 Year
  Sex: Female

DRUGS (1)
  1. NPLATE [Suspect]
     Active Substance: ROMIPLOSTIM
     Indication: IMMUNE THROMBOCYTOPENIC PURPURA
     Dosage: UNK, UNK
     Route: 065
     Dates: start: 2016, end: 201701

REACTIONS (8)
  - Myalgia [Unknown]
  - Hepatic enzyme increased [Unknown]
  - Pain [Not Recovered/Not Resolved]
  - White blood cell count increased [Unknown]
  - Asthenia [Not Recovered/Not Resolved]
  - Pyrexia [Recovering/Resolving]
  - Arthralgia [Unknown]
  - Influenza like illness [Unknown]

NARRATIVE: CASE EVENT DATE: 2017
